FAERS Safety Report 14984425 (Version 1)
Quarter: 2018Q2

REPORT INFORMATION
  Report Type: Spontaneous
  Country: US (occurrence: US)
  Receive Date: 20180607
  Receipt Date: 20180607
  Transmission Date: 20180711
  Serious: No
  Sender: FDA-Public Use
  Company Number: US-LPDUSPRD-20180062

PATIENT
  Age: 75 Year
  Sex: Female

DRUGS (1)
  1. CYANOCOBALAMIN INJECTION, USP (0031-25) [Suspect]
     Active Substance: CYANOCOBALAMIN
     Dosage: 1000MCG/1ML WEEKLY FOR 1 MONTH
     Route: 065

REACTIONS (3)
  - Arthritis [Unknown]
  - Neuropathy peripheral [Unknown]
  - Pain [Unknown]
